FAERS Safety Report 9417525 (Version 2)
Quarter: 2013Q3

REPORT INFORMATION
  Report Type: Report from Study
  Country: JP (occurrence: JP)
  Receive Date: 20130724
  Receipt Date: 20130726
  Transmission Date: 20140515
  Serious: Yes (Death, Other)
  Sender: FDA-Public Use
  Company Number: JP-PFIZER INC-2013212181

PATIENT
  Age: 55 Year
  Sex: Male

DRUGS (7)
  1. IDAMYCIN [Suspect]
     Indication: CHRONIC MYELOID LEUKAEMIA
     Dosage: 20 MG, UNK
     Route: 042
     Dates: start: 20110826, end: 20110828
  2. FRAGMIN [Suspect]
     Dosage: UNK
  3. SPRYCEL [Suspect]
     Indication: CHRONIC MYELOID LEUKAEMIA
     Dosage: 50 MG, 1 DAY
     Route: 048
     Dates: start: 20110712, end: 20110802
  4. SPRYCEL [Suspect]
     Dosage: 100 MG, 1X/DAY
     Route: 048
     Dates: start: 20110825, end: 20110917
  5. CYLOCIDE [Suspect]
     Indication: CHRONIC MYELOID LEUKAEMIA
     Dosage: 170 MG, UNK
     Route: 042
     Dates: start: 20110826, end: 20110901
  6. METHYLPREDNISOLONE SODIUM SUCCINATE [Concomitant]
     Dosage: UNK
     Dates: start: 20110922, end: 20110926
  7. MORPHINE HYDROCHLORIDE [Concomitant]
     Dosage: UNK
     Dates: start: 20110921, end: 20110927

REACTIONS (4)
  - Haemothorax [Fatal]
  - Pleural effusion [Fatal]
  - Neutrophil count decreased [Unknown]
  - Neutropenic infection [Unknown]
